FAERS Safety Report 18648357 (Version 1)
Quarter: 2020Q4

REPORT INFORMATION
  Report Type: Spontaneous
  Country: US (occurrence: US)
  Receive Date: 20201221
  Receipt Date: 20201221
  Transmission Date: 20210114
  Serious: No
  Sender: FDA-Public Use
  Company Number: None

PATIENT
  Age: 66 Year
  Sex: Male

DRUGS (1)
  1. AMLODIPINE (AMLODIPINE BESYLATE 10MG TAB) [Suspect]
     Active Substance: AMLODIPINE BESYLATE
     Dates: start: 20201019

REACTIONS (1)
  - Paraesthesia oral [None]

NARRATIVE: CASE EVENT DATE: 20201019
